FAERS Safety Report 16462098 (Version 2)
Quarter: 2019Q3

REPORT INFORMATION
  Report Type: Report from Study
  Country: US (occurrence: US)
  Receive Date: 20190621
  Receipt Date: 20190827
  Transmission Date: 20191004
  Serious: Yes (Hospitalization)
  Sender: FDA-Public Use
  Company Number: US-EMD SERONO-9098892

PATIENT
  Sex: Female

DRUGS (1)
  1. REBIF [Suspect]
     Active Substance: INTERFERON BETA-1A
     Indication: PRODUCT USED FOR UNKNOWN INDICATION
     Route: 058
     Dates: start: 20190514

REACTIONS (6)
  - Depression [Recovering/Resolving]
  - Surgery [Unknown]
  - Fatigue [Unknown]
  - Anxiety [Unknown]
  - Mobility decreased [Unknown]
  - Crying [Unknown]

NARRATIVE: CASE EVENT DATE: 2019
